FAERS Safety Report 4592934-2 (Version None)
Quarter: 2005Q1

REPORT INFORMATION
  Report Type: 
  Country: None (occurrence: None)
  Receive Date: 20050228
  Receipt Date: 20050121
  Transmission Date: 20050727
  Serious: Yes (Life-Threatening)
  Sender: FDA-Public Use
  Company Number: JP-GLAXOSMITHKLINE-B0365574A

PATIENT
  Age: 64 Year
  Sex: Female
  Weight: 57 kg

DRUGS (10)
  1. ZOVIRAX [Suspect]
     Indication: CONVULSION
     Dosage: 1500MG PER DAY
     Route: 042
     Dates: start: 20041215, end: 20041224
  2. DEPAKENE [Suspect]
     Indication: CONVULSION
     Dosage: 200MG FOUR TIMES PER DAY
     Route: 048
     Dates: start: 20041126, end: 20050102
  3. TEGRETOL [Suspect]
     Indication: CONVULSION
     Dosage: 100MG PER DAY
     Route: 048
     Dates: start: 20041220, end: 20041220
  4. PREDONINE [Concomitant]
     Indication: ASTHMA
     Dosage: 15MG PER DAY
     Route: 048
  5. FLUTICASONE PROPIONATE [Concomitant]
     Indication: ASTHMA
     Route: 055
  6. SEREVENT [Concomitant]
     Indication: ASTHMA
     Route: 055
  7. NOVOLIN R [Concomitant]
     Indication: DIABETES MELLITUS
     Route: 065
  8. PANTOSIN [Concomitant]
     Indication: CONSTIPATION
     Route: 065
  9. MAGNESIUM OXIDE [Concomitant]
     Route: 048
  10. SOLANTAL [Concomitant]
     Indication: HEADACHE
     Route: 048

REACTIONS (7)
  - ALANINE AMINOTRANSFERASE INCREASED [None]
  - ARRHYTHMIA [None]
  - ASPARTATE AMINOTRANSFERASE INCREASED [None]
  - BILIRUBIN CONJUGATED INCREASED [None]
  - BLOOD BILIRUBIN INCREASED [None]
  - JAUNDICE [None]
  - LIVER DISORDER [None]
